FAERS Safety Report 16912815 (Version 2)
Quarter: 2019Q4

REPORT INFORMATION
  Report Type: Spontaneous
  Country: FR (occurrence: FR)
  Receive Date: 20191014
  Receipt Date: 20191211
  Transmission Date: 20200122
  Serious: Yes (Life-Threatening, Other)
  Sender: FDA-Public Use
  Company Number: FR-AUROBINDO-AUR-APL-2019-066450

PATIENT
  Age: 2 Month
  Sex: Male
  Weight: 8 kg

DRUGS (5)
  1. METHYLPREDNISOLONE. [Suspect]
     Active Substance: METHYLPREDNISOLONE
     Indication: FAMILIAL HAEMOPHAGOCYTIC LYMPHOHISTIOCYTOSIS
     Dosage: UNK
     Route: 042
     Dates: start: 20171012
  2. PARACETAMOL [Suspect]
     Active Substance: ACETAMINOPHEN
     Indication: GLIOMA
     Dosage: 25 MILLIGRAM, FOUR TIMES/DAY (100 MG ONCE A DAY)
     Route: 048
     Dates: start: 20171012
  3. ALEMTUZUMAB [Suspect]
     Active Substance: ALEMTUZUMAB
     Dosage: 6.6 MILLIGRAM, ONCE A DAY
     Route: 042
     Dates: start: 20171019, end: 20171020
  4. ALEMTUZUMAB [Suspect]
     Active Substance: ALEMTUZUMAB
     Indication: FAMILIAL HAEMOPHAGOCYTIC LYMPHOHISTIOCYTOSIS
     Dosage: 3.3 MILLIGRAM, ONCE A DAY
     Route: 042
     Dates: start: 20171018, end: 20171018
  5. CICLOSPORIN [Concomitant]
     Active Substance: CYCLOSPORINE
     Indication: FAMILIAL HAEMOPHAGOCYTIC LYMPHOHISTIOCYTOSIS
     Dosage: UNK
     Route: 042
     Dates: start: 20171018

REACTIONS (1)
  - Leukopenia [Recovered/Resolved]

NARRATIVE: CASE EVENT DATE: 20171020
